FAERS Safety Report 21859708 (Version 4)
Quarter: 2023Q2

REPORT INFORMATION
  Report Type: Spontaneous
  Country: US (occurrence: US)
  Receive Date: 20230113
  Receipt Date: 20230524
  Transmission Date: 20230722
  Serious: No
  Sender: FDA-Public Use
  Company Number: US-BIOGEN-2022BI01169175

PATIENT
  Sex: Female

DRUGS (19)
  1. VUMERITY [Suspect]
     Active Substance: DIROXIMEL FUMARATE
     Indication: Multiple sclerosis
     Route: 050
     Dates: start: 20200411, end: 20200414
  2. VUMERITY [Suspect]
     Active Substance: DIROXIMEL FUMARATE
     Route: 050
     Dates: start: 20221026, end: 20221101
  3. VUMERITY [Suspect]
     Active Substance: DIROXIMEL FUMARATE
     Route: 050
     Dates: start: 20221102
  4. VUMERITY [Suspect]
     Active Substance: DIROXIMEL FUMARATE
     Route: 050
     Dates: start: 20221018
  5. VUMERITY [Suspect]
     Active Substance: DIROXIMEL FUMARATE
     Route: 050
  6. MONTELUKAST SODIUM [Concomitant]
     Active Substance: MONTELUKAST SODIUM
     Route: 050
  7. PROBIOTICS NOS [Concomitant]
     Active Substance: PROBIOTICS NOS
     Route: 050
  8. CALCIUM CITRATE [Concomitant]
     Active Substance: CALCIUM CITRATE
     Route: 050
  9. LATANOPROST [Concomitant]
     Active Substance: LATANOPROST
     Route: 050
  10. ATORVASTATIN CALCIUM [Concomitant]
     Active Substance: ATORVASTATIN CALCIUM
     Route: 050
  11. ATENOLOL [Concomitant]
     Active Substance: ATENOLOL
     Route: 050
  12. AMLODIPINE BESYLATE [Concomitant]
     Active Substance: AMLODIPINE BESYLATE
     Route: 050
  13. ASPIRIN [Concomitant]
     Active Substance: ASPIRIN
     Route: 050
  14. CLARITIN [Concomitant]
     Active Substance: LORATADINE
     Route: 050
  15. CHOLECALCIFEROL [Concomitant]
     Active Substance: CHOLECALCIFEROL
     Route: 050
  16. OMEPRAZOLE [Concomitant]
     Active Substance: OMEPRAZOLE
     Route: 050
  17. VALSARTAN [Concomitant]
     Active Substance: VALSARTAN
     Route: 050
  18. TIMOLOL MALEATE [Concomitant]
     Active Substance: TIMOLOL MALEATE
     Route: 050
  19. ALBUTEROL [Concomitant]
     Active Substance: ALBUTEROL
     Route: 050

REACTIONS (7)
  - Fatigue [Not Recovered/Not Resolved]
  - Hypoaesthesia [Not Recovered/Not Resolved]
  - Gastrointestinal disorder [Not Recovered/Not Resolved]
  - Paraesthesia [Not Recovered/Not Resolved]
  - Chromaturia [Unknown]
  - Diarrhoea [Not Recovered/Not Resolved]
  - Nausea [Not Recovered/Not Resolved]

NARRATIVE: CASE EVENT DATE: 20220101
